FAERS Safety Report 10094292 (Version 2)
Quarter: 2014Q2

REPORT INFORMATION
  Report Type: Spontaneous
  Country: AT (occurrence: AT)
  Receive Date: 20140422
  Receipt Date: 20140422
  Transmission Date: 20141212
  Serious: Yes (Other)
  Sender: FDA-Public Use
  Company Number: AT-RANBAXY-2014RR-79716

PATIENT
  Age: 64 Year
  Sex: Male

DRUGS (8)
  1. CIPROFLOXACIN [Suspect]
     Indication: PNEUMONIA ESCHERICHIA
     Dosage: 400 MG, BID
     Route: 065
  2. CIPROFLOXACIN [Suspect]
     Indication: PNEUMONIA ESCHERICHIA
     Dosage: 400 MG, TID
     Route: 065
  3. PIPERACILLIN/TAZOBACTAM [Concomitant]
     Indication: PROPHYLAXIS
     Dosage: 4/0.5 G, TID
     Route: 065
  4. PIPERACILLIN/TAZOBACTAM [Concomitant]
     Indication: PROPHYLAXIS
     Dosage: 4/0.5 G, QID
     Route: 065
  5. TIGECYCLINE [Concomitant]
     Indication: PATHOGEN RESISTANCE
     Dosage: 100 MG, BID
     Route: 065
  6. FOSFOMYCIN [Concomitant]
     Indication: PNEUMONIA ESCHERICHIA
     Dosage: 4 G, TID
     Route: 065
  7. FOSFOMYCIN [Concomitant]
     Indication: PNEUMONIA ESCHERICHIA
     Dosage: 8 G, BID
     Route: 065
  8. ATORVASTATIN [Concomitant]
     Indication: PRODUCT USED FOR UNKNOWN INDICATION
     Dosage: 80 MG, UNK
     Route: 065

REACTIONS (1)
  - Rhabdomyolysis [Recovering/Resolving]
